FAERS Safety Report 24195887 (Version 1)
Quarter: 2024Q3

REPORT INFORMATION
  Report Type: Spontaneous
  Country: PT (occurrence: PT)
  Receive Date: 20240809
  Receipt Date: 20240809
  Transmission Date: 20241016
  Serious: Yes (Other)
  Sender: DAIICHI
  Company Number: PT-DSJP-DSE-2024-139308

PATIENT
  Age: 85 Year
  Sex: Female

DRUGS (1)
  1. EDOXABAN [Suspect]
     Active Substance: EDOXABAN
     Indication: Pulmonary embolism
     Dosage: 30 MG
     Route: 065
     Dates: start: 20230520

REACTIONS (4)
  - Bladder disorder [Unknown]
  - Haemorrhagic disorder [Unknown]
  - Creatinine renal clearance decreased [Unknown]
  - Anaemia [Unknown]

NARRATIVE: CASE EVENT DATE: 20240607
